FAERS Safety Report 20934308 (Version 2)
Quarter: 2022Q3

REPORT INFORMATION
  Report Type: Spontaneous
  Country: CN (occurrence: CN)
  Receive Date: 20220608
  Receipt Date: 20220704
  Transmission Date: 20221027
  Serious: Yes (Other)
  Sender: FDA-Public Use
  Company Number: CN-ABBVIE-22K-035-4424938-00

PATIENT
  Age: 69 Year
  Sex: Male

DRUGS (8)
  1. VENETOCLAX [Suspect]
     Active Substance: VENETOCLAX
     Indication: Philadelphia positive acute lymphocytic leukaemia
     Dosage: DAY 1
     Route: 048
     Dates: start: 2021, end: 2021
  2. VENETOCLAX [Suspect]
     Active Substance: VENETOCLAX
     Dosage: DAY 2
     Route: 048
     Dates: start: 2021, end: 2021
  3. VENETOCLAX [Suspect]
     Active Substance: VENETOCLAX
     Dosage: DAY 3
     Route: 048
     Dates: start: 2021, end: 2021
  4. VENETOCLAX [Suspect]
     Active Substance: VENETOCLAX
     Dosage: DAY 4-28, 4 WEEKS OF TREATMENT
     Route: 048
     Dates: start: 2021, end: 2021
  5. VENETOCLAX [Suspect]
     Active Substance: VENETOCLAX
     Dosage: AFTER 2 WEEKS OFF
     Route: 048
     Dates: start: 2021, end: 2021
  6. PONATINIB [Suspect]
     Active Substance: PONATINIB
     Indication: Philadelphia positive acute lymphocytic leukaemia
     Route: 048
     Dates: start: 2021
  7. VINCRISTINE [Suspect]
     Active Substance: VINCRISTINE
     Indication: Philadelphia positive acute lymphocytic leukaemia
     Dosage: 2 MG, D1, 8
     Route: 040
     Dates: start: 2021
  8. DEXAMETHASONE [Suspect]
     Active Substance: DEXAMETHASONE
     Indication: Philadelphia positive acute lymphocytic leukaemia
     Dosage: D1 -14
     Route: 048
     Dates: start: 2021

REACTIONS (4)
  - Myelosuppression [Unknown]
  - Gastrointestinal disorder [Unknown]
  - Pigmentation disorder [Unknown]
  - Off label use [Unknown]

NARRATIVE: CASE EVENT DATE: 20210101
